FAERS Safety Report 6555527-3 (Version None)
Quarter: 2010Q1

REPORT INFORMATION
  Report Type: 
  Country: None (occurrence: None)
  Receive Date: 20100128
  Receipt Date: 20100122
  Transmission Date: 20100710
  Serious: Yes (Other)
  Sender: FDA-Public Use
  Company Number: GB-NAPPMUNDI-GBR-2010-0006058

PATIENT
  Sex: Female

DRUGS (4)
  1. MORPHINE SULFATE [Suspect]
     Indication: ARTHRALGIA
     Route: 065
  2. MORPHINE SULFATE [Suspect]
     Indication: HYPERMOBILITY SYNDROME
  3. TRICYCLIC ANTIDEPRESSANTS [Concomitant]
     Route: 065
  4. DOMPERIDONE [Concomitant]
     Route: 065

REACTIONS (2)
  - HYPERPROLACTINAEMIA [None]
  - LACTATION DISORDER [None]
